FAERS Safety Report 24127593 (Version 1)
Quarter: 2024Q3

REPORT INFORMATION
  Report Type: Spontaneous
  Country: US (occurrence: US)
  Receive Date: 20240723
  Receipt Date: 20240723
  Transmission Date: 20241017
  Serious: No
  Sender: SANOFI AVENTIS
  Company Number: US-SA-SAC20240718000179

PATIENT
  Age: 77 Year
  Sex: Female
  Weight: 57.6 kg

DRUGS (1)
  1. DUPIXENT [Suspect]
     Active Substance: DUPILUMAB
     Indication: Dermatitis atopic
     Dosage: 300 MG INJECT UNDER THE SKIN, EVERY 2 WEEKS
     Route: 058

REACTIONS (4)
  - Pruritus [Unknown]
  - Eczema [Unknown]
  - Respiratory tract infection [Unknown]
  - Nasopharyngitis [Unknown]

NARRATIVE: CASE EVENT DATE: 20240713
